FAERS Safety Report 6984691 (Version 3)
Quarter: 2014Q1

REPORT INFORMATION
  Report Type: Spontaneous
  Country: US (occurrence: US)
  Receive Date: 20090501
  Receipt Date: 20140324
  Transmission Date: 20141002
  Serious: Yes (Hospitalization)
  Sender: FDA-Public Use
  Company Number: US-ALEXION-A200800007

PATIENT
  Age: 81 Year
  Sex: Female
  Weight: 47 kg

DRUGS (7)
  1. SOLIRIS [Suspect]
     Indication: PAROXYSMAL NOCTURNAL HAEMOGLOBINURIA
     Dosage: 600 MG, SINGLE
     Route: 042
     Dates: start: 20071219, end: 20071219
  2. SOLIRIS [Suspect]
     Dosage: 600 MG, SINGLE
     Route: 042
     Dates: start: 20071226, end: 20071226
  3. SOLIRIS [Suspect]
     Dosage: 600 MG, SINGLE
     Route: 042
     Dates: start: 20080102, end: 20080102
  4. SOLIRIS [Suspect]
     Dosage: 600 MG, SINGLE
     Route: 042
     Dates: start: 20080109, end: 20080109
  5. FOLIC ACID [Concomitant]
     Dosage: UNK, UNK
  6. ANTIVERT /00007101/ [Concomitant]
  7. OXYCODONE [Concomitant]
     Indication: PAIN
     Dosage: UNK

REACTIONS (8)
  - Abdominal pain [Recovered/Resolved]
  - Jaundice [Not Recovered/Not Resolved]
  - Blood bilirubin increased [Recovering/Resolving]
  - Asthenia [Not Recovered/Not Resolved]
  - Blood lactate dehydrogenase increased [Not Recovered/Not Resolved]
  - Haemoglobin decreased [Unknown]
  - Fatigue [Not Recovered/Not Resolved]
  - Back pain [Not Recovered/Not Resolved]
